FAERS Safety Report 12631227 (Version 2)
Quarter: 2016Q3

REPORT INFORMATION
  Report Type: Spontaneous
  Country: US (occurrence: US)
  Receive Date: 20160808
  Receipt Date: 20160808
  Transmission Date: 20161109
  Serious: No
  Sender: FDA-Public Use
  Company Number: US-BEH-2015052901

PATIENT
  Sex: Female
  Weight: 93 kg

DRUGS (28)
  1. VENTOLIN [Concomitant]
     Active Substance: ALBUTEROL SULFATE
  2. PENTASA [Concomitant]
     Active Substance: MESALAMINE
  3. REMICADE [Concomitant]
     Active Substance: INFLIXIMAB
  4. COENZYME Q10 [Concomitant]
     Active Substance: UBIDECARENONE
  5. COD LIVER OIL [Concomitant]
     Active Substance: COD LIVER OIL
  6. MULTIVITAMIN [Concomitant]
     Active Substance: VITAMINS
  7. PULMICORT TURBUHALER [Concomitant]
     Active Substance: BUDESONIDE
  8. AMIODARONE [Concomitant]
     Active Substance: AMIODARONE
  9. PRADAXA [Concomitant]
     Active Substance: DABIGATRAN ETEXILATE MESYLATE
  10. KLOR-CON [Concomitant]
     Active Substance: POTASSIUM CHLORIDE
  11. HIZENTRA [Suspect]
     Active Substance: HUMAN IMMUNOGLOBULIN G
     Indication: IMMUNODEFICIENCY COMMON VARIABLE
     Route: 058
  12. SYNTHROID [Concomitant]
     Active Substance: LEVOTHYROXINE SODIUM
  13. EPIPEN [Concomitant]
     Active Substance: EPINEPHRINE
  14. IRON [Concomitant]
     Active Substance: IRON
  15. LIPITOR [Concomitant]
     Active Substance: ATORVASTATIN CALCIUM
  16. DIPHENHYDRAMINE. [Concomitant]
     Active Substance: DIPHENHYDRAMINE
  17. NEXIUM [Concomitant]
     Active Substance: ESOMEPRAZOLE MAGNESIUM
  18. VITAMIN B COMPLEX [Concomitant]
     Active Substance: CYANOCOBALAMIN\DEXPANTHENOL\NIACINAMIDE\PYRIDOXINE HYDROCHLORIDE\RIBOFLAVIN 5^-PHOSPHATE SODIUM\THIAMINE HYDROCHLORIDE\VITAMIN B COMPLEX
  19. SLOW MAG [Concomitant]
     Active Substance: MAGNESIUM CHLORIDE
  20. HIZENTRA [Suspect]
     Active Substance: HUMAN IMMUNOGLOBULIN G
     Route: 058
  21. ACETAMINOPHEN. [Concomitant]
     Active Substance: ACETAMINOPHEN
  22. SINGULAIR [Concomitant]
     Active Substance: MONTELUKAST SODIUM
  23. FUROSEMIDE. [Concomitant]
     Active Substance: FUROSEMIDE
  24. NASONEX [Concomitant]
     Active Substance: MOMETASONE FUROATE
  25. SYMBICORT [Concomitant]
     Active Substance: BUDESONIDE\FORMOTEROL FUMARATE DIHYDRATE
  26. VITAMIN D3 [Concomitant]
     Active Substance: CHOLECALCIFEROL
  27. COREG [Concomitant]
     Active Substance: CARVEDILOL
  28. MAGNESIUM [Concomitant]
     Active Substance: MAGNESIUM

REACTIONS (1)
  - Cough [Unknown]
